FAERS Safety Report 6612076-1 (Version None)
Quarter: 2010Q1

REPORT INFORMATION
  Report Type: 
  Country: None (occurrence: None)
  Receive Date: 20100303
  Receipt Date: 20100224
  Transmission Date: 20100710
  Serious: Yes (Death)
  Sender: FDA-Public Use
  Company Number: B0635699A

PATIENT
  Age: 39 Year
  Sex: Male

DRUGS (6)
  1. LAMIVUDINE [Suspect]
     Indication: ANTIRETROVIRAL THERAPY
     Route: 048
     Dates: end: 20090616
  2. ABACAVIR [Suspect]
     Indication: ANTIRETROVIRAL THERAPY
     Route: 048
     Dates: end: 20090616
  3. PROGRAF [Suspect]
     Indication: IMMUNOSUPPRESSION
     Dosage: 16MG PER DAY
     Route: 048
     Dates: start: 20090529, end: 20090618
  4. NEVIRAPINE [Suspect]
     Indication: ANTIRETROVIRAL THERAPY
     Route: 048
     Dates: end: 20090616
  5. TERBINAFINE HCL [Concomitant]
  6. NEORAL [Concomitant]

REACTIONS (2)
  - LACTIC ACIDOSIS [None]
  - LIVER INJURY [None]
